FAERS Safety Report 9463130 (Version 10)
Quarter: 2014Q4

REPORT INFORMATION
  Report Type: Report from Study
  Country: FR (occurrence: FR)
  Receive Date: 20130816
  Receipt Date: 20141020
  Transmission Date: 20150529
  Serious: Yes (Hospitalization)
  Sender: FDA-Public Use
  Company Number: FR-ROCHE-1257905

PATIENT
  Age: 56 Year
  Sex: Female
  Weight: 60 kg

DRUGS (12)
  1. DIOSMECTITE [Concomitant]
     Active Substance: MONTMORILLONITE
     Indication: GASTROENTERITIS VIRAL
     Route: 048
     Dates: start: 20140123, end: 20140123
  2. VEMURAFENIB [Suspect]
     Active Substance: VEMURAFENIB
     Dosage: REDUCED DOSE
     Route: 048
     Dates: start: 20130812
  3. CYSTEINE [Concomitant]
     Active Substance: CYSTEINE
     Indication: ALOPECIA
     Route: 048
     Dates: start: 20131113
  4. OXOMEMAZINE [Concomitant]
     Active Substance: OXOMEMAZINE
     Indication: BRONCHITIS
     Route: 048
     Dates: start: 20140315, end: 20140325
  5. PLACEBO [Suspect]
     Active Substance: UNSPECIFIED INGREDIENT
     Indication: MALIGNANT MELANOMA
     Dosage: LAST DOSE: 04.AUG.2013
     Route: 048
     Dates: start: 20130726, end: 20130804
  6. PLACEBO [Suspect]
     Active Substance: UNSPECIFIED INGREDIENT
     Dosage: REDUCED DOSE
     Route: 048
     Dates: start: 20130812
  7. VEMURAFENIB [Suspect]
     Active Substance: VEMURAFENIB
     Indication: MALIGNANT MELANOMA
     Dosage: LAST DOSE PRIOR TO SAE 30/JUL/2013
     Route: 048
     Dates: start: 20130726, end: 20130804
  8. ACETAMINOPHEN. [Suspect]
     Active Substance: ACETAMINOPHEN
     Indication: PYREXIA
     Route: 048
     Dates: start: 20130730
  9. CYSTEINE [Concomitant]
     Active Substance: CYSTEINE
     Indication: ALOPECIA
     Route: 061
     Dates: start: 20131113
  10. DIOSMECTITE [Concomitant]
     Active Substance: MONTMORILLONITE
     Indication: DIARRHOEA
     Route: 048
     Dates: start: 20140322, end: 20140322
  11. DIOSMECTITE [Concomitant]
     Active Substance: MONTMORILLONITE
     Indication: DIARRHOEA
     Route: 048
     Dates: start: 20140222, end: 20140223
  12. OXOMEMAZINE [Concomitant]
     Active Substance: OXOMEMAZINE
     Indication: COUGH

REACTIONS (5)
  - Dermatitis exfoliative [Recovered/Resolved]
  - Rhabdomyolysis [Recovered/Resolved]
  - Gamma-glutamyltransferase increased [Recovered/Resolved]
  - Pyrexia [Recovered/Resolved]
  - Blood creatine phosphokinase increased [Recovered/Resolved]

NARRATIVE: CASE EVENT DATE: 20130731
